FAERS Safety Report 5095136-9 (Version None)
Quarter: 2006Q3

REPORT INFORMATION
  Report Type: 
  Country: None (occurrence: None)
  Receive Date: 20060830
  Receipt Date: 20060819
  Transmission Date: 20061208
  Serious: Yes (Hospitalization)
  Sender: FDA-Public Use
  Company Number: 14630

PATIENT
  Sex: Male

DRUGS (4)
  1. DOPAMINE [Suspect]
     Indication: HYPOTENSION
     Dosage: 15 MCG/KG PER MINUTE
  2. DOPAMINE [Suspect]
     Indication: HYPOTENSION
     Dosage: 20 MCG/KG PER MINUTE
  3. NOREPINEPHRINE BITARTRATE [Suspect]
     Indication: HYPOTENSION
  4. VASOPRESSIN [Concomitant]

REACTIONS (7)
  - ATRIAL FIBRILLATION [None]
  - CONDITION AGGRAVATED [None]
  - CONVULSION [None]
  - DRUG INEFFECTIVE [None]
  - EXTRASYSTOLES [None]
  - SUDDEN DEATH [None]
  - TACHYCARDIA [None]
